FAERS Safety Report 8257231-2 (Version None)
Quarter: 2012Q2

REPORT INFORMATION
  Report Type: 
  Country: None (occurrence: None)
  Receive Date: 20120403
  Receipt Date: 20120326
  Transmission Date: 20120825
  Serious: Yes (Hospitalization, Other)
  Sender: FDA-Public Use
  Company Number: CA-BAXTER-2011BH040434

PATIENT
  Sex: Male

DRUGS (2)
  1. GAMMAGARD LIQUID [Suspect]
     Route: 065
     Dates: start: 20110713, end: 20110713
  2. GAMMAGARD LIQUID [Suspect]
     Route: 065
     Dates: start: 20110713, end: 20110713

REACTIONS (9)
  - ERYTHEMA [None]
  - HYPERSENSITIVITY [None]
  - WHEEZING [None]
  - DYSPNOEA [None]
  - TACHYCARDIA [None]
  - CHILLS [None]
  - NAUSEA [None]
  - VOMITING [None]
  - COUGH [None]
